FAERS Safety Report 26169056 (Version 1)
Quarter: 2025Q4

REPORT INFORMATION
  Report Type: Spontaneous
  Country: US (occurrence: None)
  Receive Date: 20251216
  Receipt Date: 20251216
  Transmission Date: 20260118
  Serious: No
  Sender: FDA-CTU
  Company Number: None

PATIENT
  Age: 58 Year
  Sex: Female

DRUGS (1)
  1. ESTRADIOL TRANSDERMAL SYSTEM [Suspect]
     Active Substance: ESTRADIOL
     Indication: Hormone replacement therapy
     Dosage: FREQUENCY : TWICE A WEEK;?OTHER ROUTE : PATCH;
     Route: 050
     Dates: start: 20220630, end: 20220701

REACTIONS (4)
  - Headache [None]
  - Nausea [None]
  - Vomiting [None]
  - Application site irritation [None]
